FAERS Safety Report 10240518 (Version 2)
Quarter: 2014Q3

REPORT INFORMATION
  Report Type: Report from Study
  Country: US (occurrence: US)
  Receive Date: 20140617
  Receipt Date: 20140702
  Transmission Date: 20150326
  Serious: Yes (Hospitalization)
  Sender: FDA-Public Use
  Company Number: US-BRISTOL-MYERS SQUIBB COMPANY-20798849

PATIENT
  Age: 67 Year
  Sex: Female
  Weight: 79.83 kg

DRUGS (5)
  1. IPILIMUMAB [Suspect]
     Active Substance: IPILIMUMAB
     Indication: MALIGNANT MELANOMA
     Dosage: I.THRPY: Q3 WKS X4DOSES?M.THRPY: Q12 WKS ON WKS 24,36,48,60?TOTAL DOSE:800 MG, RECENT DOSE:01APR14
     Route: 042
     Dates: start: 20140218
  2. LORAZEPAM. [Concomitant]
     Active Substance: LORAZEPAM
  3. AMLODIPINE [Concomitant]
     Active Substance: AMLODIPINE BESYLATE
  4. CLONIDINE. [Concomitant]
     Active Substance: CLONIDINE
  5. LISINOPRIL. [Concomitant]
     Active Substance: LISINOPRIL

REACTIONS (4)
  - Depressed level of consciousness [Unknown]
  - Diarrhoea [Recovered/Resolved]
  - Atrial fibrillation [Unknown]
  - Palpitations [Unknown]

NARRATIVE: CASE EVENT DATE: 20140510
